FAERS Safety Report 7270317-4 (Version None)
Quarter: 2011Q1

REPORT INFORMATION
  Report Type: 
  Country: None (occurrence: None)
  Receive Date: 20110202
  Receipt Date: 20110126
  Transmission Date: 20110831
  Serious: Yes (Death, Congenital Anomaly)
  Sender: FDA-Public Use
  Company Number: BR-BAYER-2011-008823

PATIENT

DRUGS (1)
  1. YAZ [Suspect]
     Dosage: UNK
     Route: 064

REACTIONS (1)
  - THANATOPHORIC DWARFISM [None]
